FAERS Safety Report 10886079 (Version 1)
Quarter: 2015Q1

REPORT INFORMATION
  Report Type: Spontaneous
  Country: US (occurrence: None)
  Receive Date: 20150302
  Receipt Date: 20150302
  Transmission Date: 20150721
  Serious: Yes (Other)
  Sender: FDA-Public Use
  Company Number: FK201500959

PATIENT
  Age: 46 Year

DRUGS (1)
  1. CLADRIBINE. [Suspect]
     Active Substance: CLADRIBINE
     Indication: ERDHEIM-CHESTER DISEASE
     Dosage: CYCLICAL
     Route: 041

REACTIONS (2)
  - Off label use [None]
  - Febrile neutropenia [None]
